FAERS Safety Report 12968940 (Version 10)
Quarter: 2018Q4

REPORT INFORMATION
  Report Type: Spontaneous
  Country: CA (occurrence: CA)
  Receive Date: 20161123
  Receipt Date: 20181214
  Transmission Date: 20190204
  Serious: Yes (Other)
  Sender: FDA-Public Use
  Company Number: CA-PFIZER INC-2016540024

PATIENT
  Age: 25 Year
  Sex: Female

DRUGS (11)
  1. XELJANZ [Suspect]
     Active Substance: TOFACITINIB CITRATE
     Dosage: 5 MG, 2X/DAY
     Route: 048
     Dates: start: 201702, end: 2018
  2. PANTOPRAZOLE [Concomitant]
     Active Substance: PANTOPRAZOLE
     Dosage: UNK
  3. FOLIC ACID. [Concomitant]
     Active Substance: FOLIC ACID
     Dosage: UNK
  4. VITAMIN D [Concomitant]
     Active Substance: CHOLECALCIFEROL
     Dosage: UNK
  5. XELJANZ [Suspect]
     Active Substance: TOFACITINIB CITRATE
     Indication: CROHN^S DISEASE
     Dosage: 10 MG, 2X/DAY
     Route: 048
  6. PLAQUENIL [Concomitant]
     Active Substance: HYDROXYCHLOROQUINE SULFATE
     Dosage: UNK
  7. ENTYVIO [Concomitant]
     Active Substance: VEDOLIZUMAB
     Dosage: UNK
  8. PREDNISONE. [Concomitant]
     Active Substance: PREDNISONE
     Dosage: UNK
  9. XELJANZ [Suspect]
     Active Substance: TOFACITINIB CITRATE
     Indication: RHEUMATOID ARTHRITIS
     Dosage: 5 MG, 2X/DAY
     Route: 048
     Dates: start: 20141030
  10. METHOTREXATE. [Concomitant]
     Active Substance: METHOTREXATE
     Indication: RHEUMATOID ARTHRITIS
     Dosage: 25 MG, WEEKLY
     Dates: start: 201005
  11. OMEGA 3 COMPLETE [Concomitant]
     Dosage: UNK

REACTIONS (5)
  - Cough [Unknown]
  - Sinusitis [Unknown]
  - Nausea [Recovering/Resolving]
  - Infection [Unknown]
  - Crohn^s disease [Recovering/Resolving]
